FAERS Safety Report 5719205-2 (Version None)
Quarter: 2008Q2

REPORT INFORMATION
  Report Type: 
  Country: None (occurrence: None)
  Receive Date: 20080428
  Receipt Date: 20080416
  Transmission Date: 20081010
  Serious: Yes (Other)
  Sender: FDA-Public Use
  Company Number: JP-ELI_LILLY_AND_COMPANY-JP200802004026

PATIENT
  Sex: Female

DRUGS (4)
  1. ZYPREXA [Suspect]
     Indication: DEPRESSION
     Dosage: 1.75 MG, DAILY (1/D)
     Route: 048
  2. ZOLOFT [Concomitant]
     Indication: DEPRESSION
     Dosage: 50 MG, 3/D
     Route: 048
  3. WINTERMIN [Concomitant]
     Indication: DEPRESSION
     Dosage: 50 MG, DAILY (1/D)
     Route: 048
  4. PROMETHAZINE [Concomitant]
     Indication: DEPRESSION
     Dosage: 150 MG, DAILY (1/D)
     Route: 048

REACTIONS (5)
  - CAESAREAN SECTION [None]
  - DRUG EXPOSURE DURING PREGNANCY [None]
  - PANIC ATTACK [None]
  - PREGNANCY [None]
  - PREMATURE LABOUR [None]
